FAERS Safety Report 10203794 (Version 1)
Quarter: 2014Q2

REPORT INFORMATION
  Report Type: Spontaneous
  Country: US (occurrence: None)
  Receive Date: 20140523
  Receipt Date: 20140523
  Transmission Date: 20141212
  Serious: Yes (Other)
  Sender: FDA-Public Use
  Company Number: 2014AP002969

PATIENT
  Age: 65 Year
  Sex: Male
  Weight: 72 kg

DRUGS (5)
  1. FERRIPROX [Suspect]
     Indication: SUPERFICIAL SIDEROSIS OF CENTRAL NERVOUS SYSTEM
     Route: 048
     Dates: start: 20130716
  2. OMEPRAZOLE (OMEPRAZOLE) [Concomitant]
  3. FLUOXETINE (FLUOXETINE) [Concomitant]
  4. TYLENOL PM [Concomitant]
  5. VITAMIN B12 [Concomitant]

REACTIONS (4)
  - Neutropenia [None]
  - Urinary tract infection [None]
  - Fall [None]
  - Vomiting [None]
